FAERS Safety Report 9119174 (Version 1)
Quarter: 2013Q1

REPORT INFORMATION
  Report Type: Spontaneous
  Country: US (occurrence: US)
  Receive Date: 20130207
  Receipt Date: 20130207
  Transmission Date: 20140127
  Serious: No
  Sender: FDA-Public Use
  Company Number: US-ASTRAZENECA-2013SE07082

PATIENT
  Age: 68 Year
  Sex: Female
  Weight: 80.7 kg

DRUGS (7)
  1. NEXIUM [Suspect]
     Indication: GASTROOESOPHAGEAL REFLUX DISEASE
     Route: 048
     Dates: start: 20121218, end: 20130115
  2. NEXIUM [Suspect]
     Indication: GASTROOESOPHAGEAL REFLUX DISEASE
     Route: 048
     Dates: start: 20130123
  3. BENACAR [Concomitant]
     Indication: BLOOD PRESSURE ABNORMAL
  4. AMBIEN [Concomitant]
  5. IBUPROPHEN [Concomitant]
  6. VARIOUS OTC CHEWABLE ANTACIDS [Concomitant]
  7. MEDICATION FOR BLOOD PRESSURE [Concomitant]
     Indication: BLOOD PRESSURE ABNORMAL

REACTIONS (4)
  - Muscle spasms [Recovered/Resolved]
  - Pain [Recovered/Resolved]
  - Pain [Recovered/Resolved]
  - Drug dose omission [Recovered/Resolved]
